FAERS Safety Report 6868834-1 (Version None)
Quarter: 2010Q3

REPORT INFORMATION
  Report Type: 
  Country: None (occurrence: None)
  Receive Date: 20100722
  Receipt Date: 20080619
  Transmission Date: 20110219
  Serious: No
  Sender: FDA-Public Use
  Company Number: US-PFIZER INC-2008052411

PATIENT
  Sex: Female
  Weight: 54.1 kg

DRUGS (11)
  1. CHANTIX [Suspect]
     Indication: SMOKING CESSATION THERAPY
     Dates: start: 20070101
  2. MORPHINE SULFATE [Concomitant]
  3. ALBUTEROL [Concomitant]
  4. COMBIVENT [Concomitant]
  5. ADVAIR DISKUS 100/50 [Concomitant]
  6. ESTROGENS [Concomitant]
  7. PROGESTERONE [Concomitant]
  8. ZANAFLEX [Concomitant]
  9. LEVOXYL [Concomitant]
  10. XANAX [Concomitant]
  11. ZOLOFT [Concomitant]

REACTIONS (3)
  - HEADACHE [None]
  - STRESS [None]
  - WEIGHT DECREASED [None]
